FAERS Safety Report 7279955-6 (Version None)
Quarter: 2011Q1

REPORT INFORMATION
  Report Type: 
  Country: None (occurrence: None)
  Receive Date: 20110203
  Receipt Date: 20110203
  Transmission Date: 20110831
  Serious: Yes (Hospitalization)
  Sender: FDA-Public Use
  Company Number: None

PATIENT
  Age: 52 Year
  Sex: Male

DRUGS (1)
  1. INSULIN [Suspect]
     Indication: DIABETES MELLITUS
     Dosage: 240 UNITS ONCE SQ
     Route: 058
     Dates: start: 20110103

REACTIONS (4)
  - SYNCOPE [None]
  - OVERDOSE [None]
  - ALCOHOL USE [None]
  - SUICIDE ATTEMPT [None]
